FAERS Safety Report 25633465 (Version 2)
Quarter: 2025Q3

REPORT INFORMATION
  Report Type: Spontaneous
  Country: US (occurrence: US)
  Receive Date: 20250801
  Receipt Date: 20250901
  Transmission Date: 20251020
  Serious: No
  Sender: PFIZER
  Company Number: US-PFIZER INC-202500153560

PATIENT
  Age: 75 Year
  Sex: Female
  Weight: 61.23 kg

DRUGS (1)
  1. PREMARIN [Suspect]
     Active Substance: ESTROGENS, CONJUGATED
     Indication: Cystitis
     Dosage: UNK, 2X/WEEK

REACTIONS (3)
  - Application site pain [Unknown]
  - Device issue [Unknown]
  - Off label use [Unknown]
